FAERS Safety Report 9254524 (Version 1)
Quarter: 2013Q2

REPORT INFORMATION
  Report Type: Spontaneous
  Country: US (occurrence: US)
  Receive Date: 20130425
  Receipt Date: 20130425
  Transmission Date: 20140414
  Serious: No
  Sender: FDA-Public Use
  Company Number: US-GLAXOSMITHKLINE-A1007841A

PATIENT
  Age: 69 Year
  Sex: Male

DRUGS (14)
  1. HORIZANT [Suspect]
     Indication: RESTLESS LEGS SYNDROME
     Dosage: 600MG PER DAY
     Route: 048
     Dates: start: 20130107, end: 20130107
  2. DEXILANT [Concomitant]
  3. TAMSULOSIN [Concomitant]
  4. PRAMIPEXOLE [Concomitant]
  5. FINASTERIDE [Concomitant]
  6. FLUOXETINE [Concomitant]
  7. ADDERALL [Concomitant]
  8. MULTI VITAMIN [Concomitant]
  9. VITAMIN B12 [Concomitant]
  10. VITAMIN D3 [Concomitant]
  11. OMEGA 3 [Concomitant]
  12. CALCIUM [Concomitant]
  13. ASPIRIN [Concomitant]
  14. CITRUCEL [Concomitant]

REACTIONS (8)
  - Stupor [Recovered/Resolved]
  - Somnolence [Unknown]
  - Feeling of relaxation [Unknown]
  - Adverse event [Unknown]
  - Ill-defined disorder [Unknown]
  - Fatigue [Unknown]
  - Insomnia [Unknown]
  - Drug administration error [Unknown]
